FAERS Safety Report 9386856 (Version 1)
Quarter: 2013Q3

REPORT INFORMATION
  Report Type: Spontaneous
  Country: IT (occurrence: None)
  Receive Date: 20130702
  Receipt Date: 20130702
  Transmission Date: 20140515
  Serious: Yes (Hospitalization, Other)
  Sender: FDA-Public Use
  Company Number: 2013-001945

PATIENT
  Age: 64 Year
  Sex: Female

DRUGS (3)
  1. MESALAZINE [Suspect]
     Indication: COLITIS
  2. MESALAZINE [Suspect]
     Indication: COLITIS ULCERATIVE
  3. LEVOTHYROXINE (LEVOTHYROXINE) [Concomitant]

REACTIONS (10)
  - Pure white cell aplasia [None]
  - Agranulocytosis [None]
  - Neutropenia [None]
  - Sepsis [None]
  - Increased upper airway secretion [None]
  - No therapeutic response [None]
  - Mucosal inflammation [None]
  - Lymphadenopathy [None]
  - Streptococcal infection [None]
  - Oropharyngeal pain [None]
